FAERS Safety Report 7342706-0 (Version None)
Quarter: 2011Q1

REPORT INFORMATION
  Report Type: 
  Country: None (occurrence: None)
  Receive Date: 20110310
  Receipt Date: 20110307
  Transmission Date: 20110831
  Serious: Yes (Other)
  Sender: FDA-Public Use
  Company Number: US-PFIZER INC-2011050034

PATIENT
  Sex: Male
  Weight: 104.31 kg

DRUGS (8)
  1. HYDROCHLOROTHIAZIDE [Suspect]
     Dosage: UNK
     Dates: start: 20090501
  2. GLICLAZIDE [Concomitant]
     Dosage: 60 MG, UNK
  3. PAROXETINE [Concomitant]
     Dosage: UNK
  4. FLAXSEED OIL [Concomitant]
     Dosage: UNK
  5. LIPITOR [Suspect]
     Indication: BLOOD CHOLESTEROL INCREASED
     Dosage: 40 MG, DAILY
     Route: 048
     Dates: start: 19860101, end: 20050101
  6. SIMVASTATIN [Suspect]
     Dosage: 40 MG, UNK
     Dates: start: 20090501
  7. GLIPIZIDE [Concomitant]
     Dosage: UNK
  8. PLAVIX [Suspect]
     Dosage: UNK
     Dates: start: 20090501

REACTIONS (2)
  - VENOUS OCCLUSION [None]
  - VASCULAR OCCLUSION [None]
